FAERS Safety Report 26139431 (Version 1)
Quarter: 2025Q4

REPORT INFORMATION
  Report Type: Spontaneous
  Country: US (occurrence: None)
  Receive Date: 20251209
  Receipt Date: 20251209
  Transmission Date: 20260118
  Serious: No
  Sender: FDA-CTU
  Company Number: None

PATIENT
  Age: 51 Year
  Sex: Female

DRUGS (4)
  1. ADEMPAS [Suspect]
     Active Substance: RIOCIGUAT
     Indication: Pulmonary hypertension
     Dosage: FREQUENCY : 3 TIMES A DAY;
     Route: 048
     Dates: start: 20211214, end: 20251209
  2. OPSUMIT [Suspect]
     Active Substance: MACITENTAN
  3. SELEXIPAG [Suspect]
     Active Substance: SELEXIPAG
  4. SOTATERCEPT [Suspect]
     Active Substance: SOTATERCEPT

REACTIONS (3)
  - Blood pressure decreased [None]
  - Therapy change [None]
  - Therapy change [None]

NARRATIVE: CASE EVENT DATE: 20251209
